FAERS Safety Report 9121181 (Version 1)
Quarter: 2013Q1

REPORT INFORMATION
  Report Type: Report from Study
  Country: US (occurrence: US)
  Receive Date: 20130225
  Receipt Date: 20130225
  Transmission Date: 20140127
  Serious: Yes (Other)
  Sender: FDA-Public Use
  Company Number: US-PFIZER INC-2013065117

PATIENT
  Age: 39 Year
  Sex: Female
  Weight: 90.7 kg

DRUGS (1)
  1. GEODON [Suspect]
     Dosage: UNK

REACTIONS (2)
  - Arrhythmia [Unknown]
  - Drug hypersensitivity [Unknown]
